FAERS Safety Report 11785734 (Version 8)
Quarter: 2025Q4

REPORT INFORMATION
  Report Type: Spontaneous
  Country: US (occurrence: US)
  Receive Date: 20151130
  Receipt Date: 20251002
  Transmission Date: 20260118
  Serious: Yes (Other)
  Sender: PFIZER
  Company Number: US-PFIZER INC-2015395623

PATIENT
  Age: 78 Year
  Sex: Male

DRUGS (6)
  1. DOCETAXEL [Interacting]
     Active Substance: DOCETAXEL
     Indication: Prostate cancer metastatic
     Dosage: 75 MG/M2, TOTAL DOSE = 134 MG EVERY 3 WEEKS
  2. DOCETAXEL [Interacting]
     Active Substance: DOCETAXEL
     Dosage: 30 MG/M2, TOTAL DOSE 54 MG WEEKLY
  3. BICALUTAMIDE [Interacting]
     Active Substance: BICALUTAMIDE
     Indication: Prostate cancer metastatic
     Dosage: UNK
  4. CARVEDILOL [Interacting]
     Active Substance: CARVEDILOL
     Dosage: UNK
  5. DRONEDARONE [Interacting]
     Active Substance: DRONEDARONE
     Dosage: UNK
  6. LEUPROLIDE ACETATE [Concomitant]
     Active Substance: LEUPROLIDE ACETATE
     Indication: Prostate cancer metastatic
     Dosage: UNK

REACTIONS (2)
  - Cholangitis sclerosing [Unknown]
  - Drug interaction [Unknown]
